FAERS Safety Report 10421095 (Version 1)
Quarter: 2014Q3

REPORT INFORMATION
  Report Type: Spontaneous
  Country: US (occurrence: None)
  Receive Date: 20140722
  Receipt Date: 20140722
  Transmission Date: 20150326
  Serious: No
  Sender: FDA-Public Use
  Company Number: 163-10004-14054774

PATIENT
  Age: 61 Year
  Sex: Female
  Weight: 40.82 kg

DRUGS (5)
  1. OTEZLA [Suspect]
     Active Substance: APREMILAST
     Indication: PSORIASIS
     Route: 048
     Dates: start: 20140513
  2. OXYCONTIN [Concomitant]
     Active Substance: OXYCODONE HYDROCHLORIDE
  3. XANAX [Concomitant]
     Active Substance: ALPRAZOLAM
  4. PLEXERIL (CYCLOBENZAPRINE HYDROCHLORIDE) [Concomitant]
  5. ALBUTEROL (SALBUTAMOL) [Concomitant]
     Active Substance: ALBUTEROL

REACTIONS (3)
  - Weight decreased [None]
  - Chest discomfort [None]
  - Nausea [None]

NARRATIVE: CASE EVENT DATE: 20140513
